FAERS Safety Report 19686175 (Version 1)
Quarter: 2021Q3

REPORT INFORMATION
  Report Type: Spontaneous
  Country: US (occurrence: US)
  Receive Date: 20210811
  Receipt Date: 20210811
  Transmission Date: 20211014
  Serious: No
  Sender: FDA-Public Use
  Company Number: US-PERRIGO-21US003174

PATIENT

DRUGS (2)
  1. LORATADINE. [Suspect]
     Active Substance: LORATADINE
     Indication: HYPERSENSITIVITY
     Dosage: UNKNOWN, SINGLE
     Route: 048
     Dates: start: 202102, end: 202102
  2. LORATADINE. [Suspect]
     Active Substance: LORATADINE
     Dosage: UNKNOWN, SINGLE
     Route: 048
     Dates: start: 202102, end: 202102

REACTIONS (1)
  - Nausea [Recovered/Resolved]

NARRATIVE: CASE EVENT DATE: 202102
